FAERS Safety Report 7836242-2 (Version None)
Quarter: 2011Q4

REPORT INFORMATION
  Report Type: 
  Country: None (occurrence: None)
  Receive Date: 20111024
  Receipt Date: 20111013
  Transmission Date: 20120403
  Serious: Yes (Hospitalization)
  Sender: FDA-Public Use
  Company Number: DE-ASTRAZENECA-2011SE61786

PATIENT
  Age: 60 Year
  Sex: Female

DRUGS (3)
  1. ARIMIDEX [Suspect]
     Indication: BREAST CANCER
     Route: 048
     Dates: start: 20080101, end: 20111001
  2. ARIMIDEX [Suspect]
     Route: 048
     Dates: start: 20111001, end: 20111001
  3. ARIMIDEX [Suspect]
     Route: 048
     Dates: start: 20111001

REACTIONS (6)
  - ARTHRITIS [None]
  - ARTHRALGIA [None]
  - SEPSIS [None]
  - PNEUMONIA [None]
  - HOT FLUSH [None]
  - ACCIDENTAL OVERDOSE [None]
